FAERS Safety Report 5991563-3 (Version None)
Quarter: 2008Q4

REPORT INFORMATION
  Report Type: 
  Country: None (occurrence: None)
  Receive Date: 20081202
  Receipt Date: 20071210
  Transmission Date: 20090506
  Serious: Yes (Other)
  Sender: FDA-Public Use
  Company Number: WAES 0612USA01813

PATIENT
  Age: 71 Year
  Sex: Female
  Weight: 75.7507 kg

DRUGS (1)
  1. FOSAMAX [Suspect]
     Indication: OSTEOPENIA
     Dosage: 70 MG/WKY/PO
     Route: 048
     Dates: start: 20030107, end: 20060104

REACTIONS (7)
  - ANXIETY [None]
  - ARTHRALGIA [None]
  - CERVICOBRACHIAL SYNDROME [None]
  - DEPRESSION [None]
  - FOREIGN BODY TRAUMA [None]
  - JOINT STIFFNESS [None]
  - OSTEONECROSIS [None]
